FAERS Safety Report 5684812-2 (Version None)
Quarter: 2008Q1

REPORT INFORMATION
  Report Type: 
  Country: None (occurrence: None)
  Receive Date: 20080328
  Receipt Date: 20071008
  Transmission Date: 20080703
  Serious: Yes (Other)
  Sender: FDA-Public Use
  Company Number: US-BRISTOL-MYERS SQUIBB COMPANY-13933445

PATIENT
  Age: 69 Year
  Sex: Male
  Weight: 82 kg

DRUGS (6)
  1. ERBITUX [Suspect]
     Indication: NEOPLASM MALIGNANT
     Route: 041
     Dates: start: 20070701, end: 20070906
  2. RADIATION THERAPY [Suspect]
  3. NEUPOGEN [Concomitant]
  4. ZOFRAN [Concomitant]
  5. BENADRYL [Concomitant]
  6. TYLENOL (CAPLET) [Concomitant]

REACTIONS (4)
  - DYSPHAGIA [None]
  - GASTROINTESTINAL OEDEMA [None]
  - NO THERAPEUTIC RESPONSE [None]
  - SKIN INFECTION [None]
